FAERS Safety Report 9460523 (Version 2)
Quarter: 2013Q3

REPORT INFORMATION
  Report Type: Spontaneous
  Country: US (occurrence: US)
  Receive Date: 20130815
  Receipt Date: 20130819
  Transmission Date: 20140515
  Serious: Yes (Other)
  Sender: FDA-Public Use
  Company Number: US-TEVA-426171USA

PATIENT
  Age: 34 Year
  Sex: Female
  Weight: 74.91 kg

DRUGS (1)
  1. PARAGARD 380A [Suspect]
     Indication: CONTRACEPTION
     Route: 015
     Dates: start: 20121212

REACTIONS (3)
  - Pregnancy with contraceptive device [Unknown]
  - Embedded device [Not Recovered/Not Resolved]
  - Drug ineffective [Unknown]
